FAERS Safety Report 17268525 (Version 1)
Quarter: 2020Q1

REPORT INFORMATION
  Report Type: Spontaneous
  Country: US (occurrence: US)
  Receive Date: 20191223
  Receipt Date: 20191223
  Transmission Date: 20200409
  Serious: No
  Sender: FDA-Public Use
  Company Number: None

PATIENT
  Age: 69 Year
  Sex: Male

DRUGS (1)
  1. NUCALA [Suspect]
     Active Substance: MEPOLIZUMAB
     Dosage: ?          OTHER FREQUENCY:EVERY4WEEKS ;?
     Route: 058
     Dates: start: 20190416

REACTIONS (2)
  - Shoulder operation [None]
  - Pain [None]

NARRATIVE: CASE EVENT DATE: 20191220
